FAERS Safety Report 6324418-5 (Version None)
Quarter: 2009Q3

REPORT INFORMATION
  Report Type: 
  Country: None (occurrence: None)
  Receive Date: 20090824
  Receipt Date: 20090428
  Transmission Date: 20100115
  Serious: No
  Sender: FDA-Public Use
  Company Number: US-ABBOTT-09P-163-0570622-00

PATIENT
  Sex: Male
  Weight: 104.42 kg

DRUGS (8)
  1. NIASPAN [Suspect]
     Indication: BLOOD TRIGLYCERIDES INCREASED
     Route: 048
     Dates: start: 20090301
  2. BENICAR [Concomitant]
     Indication: HYPERTENSION
     Dosage: 20/12.5 ONCE DAILY
     Route: 048
  3. OMEPRAZOLE ER [Concomitant]
     Indication: GASTROOESOPHAGEAL REFLUX DISEASE
     Route: 048
  4. VYTORIN [Concomitant]
     Indication: BLOOD PRESSURE
     Dosage: 10/40 ONCE DAILY
     Route: 048
  5. PLAVIX [Concomitant]
     Indication: CORONARY ARTERIAL STENT INSERTION
     Route: 048
  6. METOPROLOL [Concomitant]
     Indication: CARDIAC DISORDER
     Route: 048
  7. STOOL SOFTENER [Concomitant]
     Indication: DRUG USE FOR UNKNOWN INDICATION
     Route: 048
  8. MEGA-RED OMEGA 3 [Concomitant]
     Indication: SUPPLEMENTATION THERAPY
     Route: 048

REACTIONS (1)
  - ABDOMINAL PAIN UPPER [None]
